FAERS Safety Report 5341732-0 (Version None)
Quarter: 2007Q2

REPORT INFORMATION
  Report Type: 
  Country: None (occurrence: None)
  Receive Date: 20070530
  Receipt Date: 20070515
  Transmission Date: 20071010
  Serious: Yes (Hospitalization)
  Sender: FDA-Public Use
  Company Number: 070521-0000534

PATIENT
  Age: 26 Year
  Sex: Female

DRUGS (4)
  1. NEMBUTAL [Suspect]
     Indication: DRUG USE FOR UNKNOWN INDICATION
     Dosage: 700 MG
  2. ETIZOLAM (ETIZOLAM) [Suspect]
     Indication: DRUG USE FOR UNKNOWN INDICATION
  3. LEVOMEPROMAZINE (LEVOMEPROMAZINE) [Suspect]
     Indication: DRUG USE FOR UNKNOWN INDICATION
  4. CLOMIPRAMINE HCL [Suspect]
     Indication: DRUG USE FOR UNKNOWN INDICATION

REACTIONS (6)
  - BLOOD PRESSURE SYSTOLIC DECREASED [None]
  - COMA [None]
  - DRUG LEVEL INCREASED [None]
  - ELECTROCARDIOGRAM QT CORRECTED INTERVAL PROLONGED [None]
  - HEART RATE INCREASED [None]
  - RESPIRATORY RATE INCREASED [None]
